FAERS Safety Report 7653838-1 (Version None)
Quarter: 2011Q3

REPORT INFORMATION
  Report Type: 
  Country: None (occurrence: None)
  Receive Date: 20110803
  Receipt Date: 20110723
  Transmission Date: 20111222
  Serious: No
  Sender: FDA-Public Use
  Company Number: US-B.I. PHARMACEUTICALS,INC./RIDGEFIELD-2011-BP-18369BP

PATIENT
  Age: 51 Year
  Sex: Male

DRUGS (2)
  1. PRILOSEC [Concomitant]
     Indication: DYSPEPSIA
     Dates: end: 20110601
  2. ZANTAC 150 [Suspect]
     Indication: DYSPEPSIA
     Dosage: 300 MG
     Route: 048
     Dates: start: 20110601, end: 20110720

REACTIONS (2)
  - MIGRAINE [None]
  - HEADACHE [None]
